FAERS Safety Report 5014429-4 (Version None)
Quarter: 2006Q2

REPORT INFORMATION
  Report Type: 
  Country: None (occurrence: None)
  Receive Date: 20060531
  Receipt Date: 20050601
  Transmission Date: 20061013
  Serious: Yes (Hospitalization, Other)
  Sender: FDA-Public Use
  Company Number: PHEH2005US06169

PATIENT
  Age: 59 Year
  Sex: Female
  Weight: 71.201 kg

DRUGS (32)
  1. ZOMETA [Suspect]
     Indication: BREAST CANCER METASTATIC
     Dosage: 4 MG  Q3-4 WKS
     Route: 042
     Dates: start: 20010101, end: 20040915
  2. AREDIA [Suspect]
     Indication: BREAST CANCER METASTATIC
     Dosage: 90 MG, QMO
     Route: 042
     Dates: start: 19960101
  3. ADRIAMYCIN PFS [Concomitant]
     Dates: start: 19970501
  4. TAXOL [Concomitant]
     Dates: start: 19970501
  5. NEUPOGEN [Concomitant]
     Indication: GRANULOCYTE COUNT DECREASED
     Dates: start: 19970801
  6. MEGACE [Concomitant]
     Indication: HOT FLUSH
  7. IMITREX [Concomitant]
     Indication: MIGRAINE
     Dosage: 50-100 MG, UNK
  8. CHEMOTHERAPEUTICS,OTHER [Concomitant]
  9. TAMOXIFEN [Concomitant]
     Indication: BREAST CANCER
     Route: 048
     Dates: start: 19960501
  10. ULTRAM [Concomitant]
     Indication: DISCOMFORT
  11. TAXOTERE [Concomitant]
     Indication: OVARIAN CANCER
     Dates: start: 20030101, end: 20030101
  12. CARBOPLATIN [Concomitant]
     Indication: OVARIAN CANCER
     Dosage: 100 MG, ONCE/SINGLE
     Dates: start: 20030724, end: 20030724
  13. CARBOPLATIN [Concomitant]
     Dosage: 500 MG, ONCE/SINGLE
     Dates: start: 20030731, end: 20030731
  14. CARBOPLATIN [Concomitant]
     Dosage: 200 MG EVERY WEEK FOR 3 WEEKS
     Dates: start: 20030101, end: 20030724
  15. ARIMIDEX [Concomitant]
     Indication: BREAST CANCER
     Dosage: 1 MG, QD
  16. EPOGEN [Concomitant]
  17. AMISFOSTINE [Concomitant]
     Indication: BREAST CANCER
  18. FLUOROURACIL [Concomitant]
     Indication: NEOPLASM MALIGNANT
     Dosage: 1050 MG, UNK
  19. DECADRON SRC [Concomitant]
     Dosage: 10 MG, UNK
  20. METHOTREXATE [Concomitant]
     Indication: NEOPLASM MALIGNANT
  21. FLUID/ELECTROLYTE REPLACEMENT THERAPY [Concomitant]
     Indication: PROPHYLAXIS
  22. KYTRIL [Concomitant]
     Indication: PROPHYLAXIS
     Dosage: 1 MG, UNK
  23. BENADRYL [Concomitant]
     Indication: PROPHYLAXIS
     Dosage: 50 MG, UNK
  24. TAGAMET [Concomitant]
     Indication: PROPHYLAXIS
     Dosage: 300 MG, UNK
  25. TORECAN [Concomitant]
     Dosage: 10 MG, EVERY 4-6 HOURS PRN
     Dates: start: 19970516
  26. ANZEMET [Concomitant]
  27. CIMETIDINE [Concomitant]
  28. MITOXANTRONE HYDROCHLORIDE [Concomitant]
  29. ETODOLAC [Concomitant]
     Dosage: 400MG  Q8H
  30. MAXALT-MLT [Concomitant]
     Dosage: 10MG UNK
  31. ALPRAZOLAM [Concomitant]
     Dosage: 0.5MG UNK
  32. NASACORT AQ [Concomitant]

REACTIONS (38)
  - ABDOMINAL PAIN [None]
  - AGRANULOCYTOSIS [None]
  - ANAEMIA [None]
  - BLOOD ALKALINE PHOSPHATASE INCREASED [None]
  - BLOOD GLUCOSE INCREASED [None]
  - BONE DENSITY DECREASED [None]
  - BONE DISORDER [None]
  - COLITIS [None]
  - DEEP VEIN THROMBOSIS [None]
  - DIARRHOEA [None]
  - ENDODONTIC PROCEDURE [None]
  - FATIGUE [None]
  - FISTULA [None]
  - HAEMATOCRIT DECREASED [None]
  - HAEMOGLOBIN DECREASED [None]
  - HYPOAESTHESIA [None]
  - IMPAIRED HEALING [None]
  - JAW OPERATION [None]
  - LIVER FUNCTION TEST ABNORMAL [None]
  - LUNG NEOPLASM MALIGNANT [None]
  - NAUSEA [None]
  - NEOPLASM [None]
  - OEDEMA PERIPHERAL [None]
  - OVARIAN CANCER [None]
  - PAIN IN JAW [None]
  - PLATELET COUNT DECREASED [None]
  - PURULENT DISCHARGE [None]
  - RED BLOOD CELL COUNT DECREASED [None]
  - SALPINGO-OOPHORECTOMY UNILATERAL [None]
  - SOFT TISSUE DISORDER [None]
  - SWELLING [None]
  - TENDERNESS [None]
  - TOOTH DISORDER [None]
  - TOOTH EXTRACTION [None]
  - VOMITING [None]
  - WHITE BLOOD CELL COUNT DECREASED [None]
  - WOUND DEBRIDEMENT [None]
  - WOUND TREATMENT [None]
